FAERS Safety Report 21205131 (Version 2)
Quarter: 2022Q3

REPORT INFORMATION
  Report Type: Spontaneous
  Country: CN (occurrence: CN)
  Receive Date: 20220812
  Receipt Date: 20220818
  Transmission Date: 20221027
  Serious: Yes (Life-Threatening, Hospitalization, Other)
  Sender: FDA-Public Use
  Company Number: CN-MLMSERVICE-20220803-3715235-1

PATIENT
  Age: 60 Year
  Sex: Male

DRUGS (12)
  1. PREDNISONE [Interacting]
     Active Substance: PREDNISONE
     Indication: Pemphigus
     Dosage: 50 MG, QD
     Route: 048
  2. PREDNISONE [Interacting]
     Active Substance: PREDNISONE
     Dosage: NEARLY 5-MG REDUCTION OF THE DOSE PER WEEK
  3. PREDNISONE [Interacting]
     Active Substance: PREDNISONE
     Dosage: 50 MG, QD
  4. PREDNISONE [Interacting]
     Active Substance: PREDNISONE
     Dosage: 20 MG, QD,DOSAGE WAS TAPERED TO 20 MG DAILY
  5. PREDNISONE [Interacting]
     Active Substance: PREDNISONE
     Dosage: 50 MG, QD
  6. PREDNISONE [Interacting]
     Active Substance: PREDNISONE
     Dosage: 75 MG, QD (DOSE TITRATED)
  7. PREDNISONE [Interacting]
     Active Substance: PREDNISONE
     Dosage: 80 MG, QD
  8. PREDNISONE [Interacting]
     Active Substance: PREDNISONE
     Dosage: 40 MG, QD (REDUCED)
  9. RIFAMPIN [Interacting]
     Active Substance: RIFAMPIN
     Indication: Pulmonary tuberculosis
     Dosage: UNK UNK, QD
  10. ETHAMBUTOL [Concomitant]
     Active Substance: ETHAMBUTOL HYDROCHLORIDE
     Indication: Pulmonary tuberculosis
     Dosage: UNK UNK, QD
  11. ISONIAZID [Concomitant]
     Active Substance: ISONIAZID
     Indication: Pulmonary tuberculosis
     Dosage: UNK UNK, QD
  12. LEVOFLOXACIN [Concomitant]
     Active Substance: LEVOFLOXACIN
     Indication: Pulmonary tuberculosis
     Dosage: UNK UNK, QD

REACTIONS (17)
  - Pemphigus [Recovered/Resolved]
  - Condition aggravated [Recovered/Resolved]
  - Erythema [Recovered/Resolved]
  - Blister [Recovered/Resolved]
  - Rash [Recovered/Resolved]
  - Skin erosion [Recovered/Resolved]
  - Drug resistance [Recovered/Resolved]
  - Drug interaction [Recovered/Resolved]
  - Pulmonary tuberculosis [Recovered/Resolved]
  - Optic atrophy [Unknown]
  - Diabetes mellitus [Unknown]
  - Glaucoma [Unknown]
  - Cataract [Unknown]
  - Osteonecrosis [Unknown]
  - Hypertension [Unknown]
  - Osteoporosis [Unknown]
  - Treatment noncompliance [Unknown]
